FAERS Safety Report 9160585 (Version 2)
Quarter: 2013Q3

REPORT INFORMATION
  Report Type: Report from Study
  Country: US (occurrence: US)
  Receive Date: 20130313
  Receipt Date: 20130806
  Transmission Date: 20140515
  Serious: No
  Sender: FDA-Public Use
  Company Number: US-ABBOTT-13P-163-1053925-00

PATIENT
  Sex: Female
  Weight: 53.57 kg

DRUGS (10)
  1. DEPAKOTE ER [Suspect]
     Indication: BIPOLAR DISORDER
     Route: 048
     Dates: start: 201206
  2. DEPAKOTE ER [Suspect]
     Indication: MOOD ALTERED
  3. LYRICA [Suspect]
     Indication: FIBROMYALGIA
     Route: 048
     Dates: start: 201206
  4. LYRICA [Suspect]
     Indication: RHEUMATOID ARTHRITIS
  5. DEPAKOTE [Concomitant]
     Indication: BIPOLAR DISORDER
     Dates: start: 1999, end: 201206
  6. DEPAKOTE [Concomitant]
     Indication: AFFECTIVE DISORDER
  7. LORTAB [Concomitant]
     Indication: PAIN
  8. PERCOCET [Concomitant]
     Indication: PAIN
  9. ULTRAM [Concomitant]
     Indication: PRODUCT USED FOR UNKNOWN INDICATION
  10. PROTONIX [Concomitant]
     Indication: GASTRIC DISORDER

REACTIONS (11)
  - Blood glucose decreased [Not Recovered/Not Resolved]
  - Feeling abnormal [Not Recovered/Not Resolved]
  - Kidney infection [Not Recovered/Not Resolved]
  - Urine odour abnormal [Recovered/Resolved]
  - Renal pain [Recovered/Resolved]
  - Irritability [Not Recovered/Not Resolved]
  - Asthenia [Not Recovered/Not Resolved]
  - Tremor [Not Recovered/Not Resolved]
  - Nausea [Not Recovered/Not Resolved]
  - Speech disorder [Not Recovered/Not Resolved]
  - Drug ineffective [Not Recovered/Not Resolved]
